FAERS Safety Report 5251219-1 (Version None)
Quarter: 2007Q1

REPORT INFORMATION
  Report Type: 
  Country: None (occurrence: None)
  Receive Date: 20070228
  Receipt Date: 20070221
  Transmission Date: 20070707
  Serious: Yes (Hospitalization, Other)
  Sender: FDA-Public Use
  Company Number: HQWYE350202FEB07

PATIENT
  Sex: Female
  Weight: 86.26 kg

DRUGS (6)
  1. PREMPRO [Suspect]
     Indication: HOT FLUSH
     Dosage: NOT PROVIDED
     Route: 048
     Dates: start: 19900101, end: 20000601
  2. PREMPRO [Suspect]
     Indication: OSTEOPOROSIS PROPHYLAXIS
  3. PROVERA [Suspect]
     Indication: OSTEOPOROSIS PROPHYLAXIS
     Dosage: NOT PROVIDED
  4. PROVERA [Suspect]
     Indication: HOT FLUSH
  5. PREMARIN [Suspect]
     Indication: HOT FLUSH
     Dosage: NOT PROVIDED
     Route: 048
  6. PREMARIN [Suspect]
     Indication: OSTEOPOROSIS PROPHYLAXIS

REACTIONS (2)
  - BREAST CANCER METASTATIC [None]
  - DRUG INEFFECTIVE [None]
